FAERS Safety Report 9606283 (Version 2)
Quarter: 2013Q4

REPORT INFORMATION
  Report Type: Report from Study
  Country: AU (occurrence: AU)
  Receive Date: 20131008
  Receipt Date: 20131008
  Transmission Date: 20140711
  Serious: Yes (Other)
  Sender: FDA-Public Use
  Company Number: AU-ROCHE-1276434

PATIENT
  Age: 65 Year
  Sex: Female

DRUGS (11)
  1. ACTEMRA [Suspect]
     Indication: RHEUMATOID ARTHRITIS
     Route: 042
     Dates: start: 201309
  2. ACTEMRA [Suspect]
     Route: 042
     Dates: start: 20121214
  3. ASASANTIN [Concomitant]
     Indication: MYOCARDIAL ISCHAEMIA
     Dosage: DAILY DOSE: 200MG/25MG
     Route: 048
  4. DIAFORMIN [Concomitant]
     Indication: DIABETES MELLITUS
     Route: 048
  5. LIPITOR [Concomitant]
     Indication: HYPERLIPIDAEMIA
     Route: 048
  6. LYRICA [Concomitant]
     Indication: PAIN MANAGEMENT
     Route: 065
  7. NEXIUM [Concomitant]
     Route: 065
  8. NORSPAN PATCH [Concomitant]
     Route: 065
  9. PAXTINE [Concomitant]
     Indication: DEPRESSION
     Route: 065
  10. FRUSEMIDE [Concomitant]
     Indication: MYOCARDIAL ISCHAEMIA
     Route: 065
  11. NITROLINGUAL SPRAY [Concomitant]
     Indication: MYOCARDIAL ISCHAEMIA
     Dosage: AS REQUIRED
     Route: 065

REACTIONS (1)
  - Palpitations [Recovered/Resolved]
